FAERS Safety Report 9495192 (Version 1)
Quarter: 2013Q3

REPORT INFORMATION
  Report Type: Spontaneous
  Country: US (occurrence: None)
  Receive Date: 20130828
  Receipt Date: 20130828
  Transmission Date: 20140515
  Serious: Yes (Other)
  Sender: FDA-Public Use
  Company Number: 2013P1018570

PATIENT
  Age: 85 Year
  Sex: Male

DRUGS (2)
  1. ISOSORBIDE DINITRATE [Suspect]
     Dosage: 5MG;X1;SL
  2. RADIOISOTOPE [Concomitant]

REACTIONS (5)
  - Angina pectoris [None]
  - Cardiac failure [None]
  - Myocardial ischaemia [None]
  - Blood pressure decreased [None]
  - Heart rate increased [None]
